FAERS Safety Report 15217516 (Version 1)
Quarter: 2018Q3

REPORT INFORMATION
  Report Type: Spontaneous
  Country: US (occurrence: US)
  Receive Date: 20180730
  Receipt Date: 20180730
  Transmission Date: 20181010
  Serious: Yes (Death, Other)
  Sender: FDA-Public Use
  Company Number: US-GILEAD-2018-0352326

PATIENT
  Sex: Female

DRUGS (1)
  1. YESCARTA [Suspect]
     Active Substance: AXICABTAGENE CILOLEUCEL
     Indication: PRODUCT USED FOR UNKNOWN INDICATION
     Dosage: UNK UNK, ONCE
     Route: 042

REACTIONS (7)
  - Neurotoxicity [Unknown]
  - Death [Fatal]
  - Cytopenia [Unknown]
  - Systemic mycosis [Unknown]
  - Parvovirus infection [Unknown]
  - Cytokine release syndrome [Unknown]
  - Human ehrlichiosis [Unknown]

NARRATIVE: CASE EVENT DATE: 20180724
